FAERS Safety Report 13882017 (Version 1)
Quarter: 2017Q3

REPORT INFORMATION
  Report Type: Not Available
  Country: US (occurrence: US)
  Receive Date: 20170818
  Receipt Date: 20170818
  Transmission Date: 20171127
  Serious: No
  Sender: FDA-Public Use
  Company Number: US-ANIPHARMA-2017-US-009623

PATIENT
  Age: 70 Year
  Sex: Male
  Weight: 117.03 kg

DRUGS (1)
  1. FLUVOXAMINE MALEATE 50 MG [Suspect]
     Active Substance: FLUVOXAMINE MALEATE
     Dosage: 1/2 TABLET ONCE DAILY
     Route: 048
     Dates: start: 20170717

REACTIONS (2)
  - Faeces discoloured [Not Recovered/Not Resolved]
  - Diarrhoea [Recovered/Resolved]

NARRATIVE: CASE EVENT DATE: 20170718
